FAERS Safety Report 6581506-6 (Version None)
Quarter: 2010Q1

REPORT INFORMATION
  Report Type: 
  Country: None (occurrence: None)
  Receive Date: 20100215
  Receipt Date: 20100208
  Transmission Date: 20100710
  Serious: Yes (Death, Hospitalization)
  Sender: FDA-Public Use
  Company Number: B0633366A

PATIENT
  Sex: Male
  Weight: 75 kg

DRUGS (5)
  1. AUGMENTIN '125' [Suspect]
     Indication: BRONCHITIS
     Route: 065
     Dates: start: 20100126, end: 20100126
  2. PINDOLOL [Concomitant]
     Dosage: 15MG PER DAY
     Route: 048
     Dates: start: 20080101
  3. LASIX [Concomitant]
     Dosage: 40MG PER DAY
     Route: 048
     Dates: start: 20060101
  4. METFORMIN HCL [Concomitant]
     Dosage: 850MG TWICE PER DAY
     Route: 048
     Dates: start: 20020101
  5. PROMOCARD [Concomitant]
     Dosage: 60MG PER DAY
     Route: 048

REACTIONS (2)
  - ANAPHYLACTIC SHOCK [None]
  - DEATH [None]
